FAERS Safety Report 4417794-1 (Version None)
Quarter: 2004Q2

REPORT INFORMATION
  Report Type: 
  Country: None (occurrence: None)
  Receive Date: 20040621
  Receipt Date: 20040506
  Transmission Date: 20050107
  Serious: No
  Sender: FDA-Public Use
  Company Number: PHEH2004US01640

PATIENT
  Age: 61 Year
  Sex: Female
  Weight: 61.7 kg

DRUGS (7)
  1. ZOMETA [Suspect]
     Indication: METASTASES TO BONE
     Dosage: 4 MG, QMO, INTRAVENOUS
     Route: 042
     Dates: start: 20020524
  2. GEMZAR [Concomitant]
  3. PAROXETINE HCL [Concomitant]
  4. TRAZODONE HCL [Concomitant]
  5. ATIVAN [Concomitant]
  6. MVI (VITAMINS NOS) [Concomitant]
  7. FLONASE [Concomitant]

REACTIONS (5)
  - ANAEMIA [None]
  - BONE DISORDER [None]
  - HAEMATOCRIT DECREASED [None]
  - HAEMOGLOBIN DECREASED [None]
  - RED BLOOD CELL COUNT DECREASED [None]
